FAERS Safety Report 15596168 (Version 1)
Quarter: 2018Q4

REPORT INFORMATION
  Report Type: Spontaneous
  Country: US (occurrence: US)
  Receive Date: 20181108
  Receipt Date: 20181108
  Transmission Date: 20190205
  Serious: Yes (Death, Hospitalization, Congenital Anomaly, Other)
  Sender: FDA-Public Use
  Company Number: US-LUPIN PHARMACEUTICALS INC.-2018-07715

PATIENT
  Age: 5 Month
  Sex: Male
  Weight: 1.95 kg

DRUGS (4)
  1. MISOPROSTOL. [Suspect]
     Active Substance: MISOPROSTOL
     Indication: ABORTION INDUCED
     Dosage: 800 MCG, UNK
     Route: 064
  2. MISOPROSTOL. [Suspect]
     Active Substance: MISOPROSTOL
     Dosage: 800 MCG, UNK
     Route: 064
  3. MIFEPRISTONE [Suspect]
     Active Substance: MIFEPRISTONE
     Indication: ABORTION INDUCED
     Dosage: 200 MG, UNK
     Route: 064
  4. METHOTREXATE. [Suspect]
     Active Substance: METHOTREXATE
     Indication: ABORTION INDUCED
     Dosage: 65 MG, UNK
     Route: 064

REACTIONS (10)
  - Death [Fatal]
  - Cleft lip and palate [Unknown]
  - Ultrasound skull abnormal [Unknown]
  - Fallot^s tetralogy [Unknown]
  - Genitalia external ambiguous [Unknown]
  - Foetal growth restriction [Unknown]
  - Congenital bowing of long bones [Unknown]
  - X-ray limb abnormal [Unknown]
  - Spinal deformity [Unknown]
  - Foetal exposure during pregnancy [Unknown]
